FAERS Safety Report 19137219 (Version 2)
Quarter: 2021Q2

REPORT INFORMATION
  Report Type: Spontaneous
  Country: US (occurrence: US)
  Receive Date: 20210415
  Receipt Date: 20210418
  Transmission Date: 20210717
  Serious: Yes (Other)
  Sender: FDA-Public Use
  Company Number: US-ROCHE-2807833

PATIENT
  Age: 55 Year
  Sex: Female
  Weight: 81.72 kg

DRUGS (1)
  1. XOLAIR [Suspect]
     Active Substance: OMALIZUMAB
     Indication: IDIOPATHIC URTICARIA
     Dosage: ONE INJECTION IN EACH ARM, 150 MG
     Route: 058
     Dates: start: 202012

REACTIONS (3)
  - Nephrolithiasis [Recovered/Resolved]
  - Burning sensation [Not Recovered/Not Resolved]
  - Incorrect route of product administration [Unknown]

NARRATIVE: CASE EVENT DATE: 202012
